FAERS Safety Report 7234153-7 (Version None)
Quarter: 2011Q1

REPORT INFORMATION
  Report Type: 
  Country: None (occurrence: None)
  Receive Date: 20110119
  Receipt Date: 20110113
  Transmission Date: 20110831
  Serious: No
  Sender: FDA-Public Use
  Company Number: US-PFIZER INC-2010158453

PATIENT
  Sex: Male
  Weight: 73 kg

DRUGS (8)
  1. TOVIAZ [Suspect]
     Indication: POLLAKIURIA
     Dosage: UNK
     Route: 048
     Dates: start: 20101101
  2. LORAZEPAM [Concomitant]
     Indication: NERVOUSNESS
     Dosage: UNK
     Route: 048
  3. FENOFIBRATE [Concomitant]
     Dosage: UNK
     Route: 048
  4. GABAPENTIN [Concomitant]
     Dosage: UNK
     Route: 048
  5. WELLBUTRIN [Concomitant]
     Dosage: UNK
     Route: 048
  6. TOVIAZ [Suspect]
     Indication: HYPERTONIC BLADDER
  7. PROZAC [Concomitant]
     Dosage: UNK
     Route: 048
  8. METFORMIN [Concomitant]
     Dosage: UNK
     Route: 048

REACTIONS (1)
  - NOCTURIA [None]
